FAERS Safety Report 8082657-X (Version None)
Quarter: 2012Q1

REPORT INFORMATION
  Report Type: 
  Country: None (occurrence: None)
  Receive Date: 20120127
  Receipt Date: 20110224
  Transmission Date: 20120608
  Serious: No
  Sender: FDA-Public Use
  Company Number: US-ABBOTT-11P-163-0707542-00

PATIENT
  Age: 39 Year
  Sex: Female

DRUGS (3)
  1. HUMIRA [Suspect]
     Dosage: 2 PENS
     Dates: start: 20110207, end: 20110207
  2. HUMIRA [Suspect]
     Indication: COLITIS ULCERATIVE
     Dates: start: 20110124
  3. RE-NAL-DA [Concomitant]
     Indication: PRODUCT USED FOR UNKNOWN INDICATION
     Dosage: 3.6 GMS DAILY

REACTIONS (5)
  - DIZZINESS [None]
  - INFLUENZA LIKE ILLNESS [None]
  - SINUSITIS [None]
  - ASTHENOPIA [None]
  - PAIN [None]
